FAERS Safety Report 25743603 (Version 2)
Quarter: 2025Q4

REPORT INFORMATION
  Report Type: Spontaneous
  Country: US (occurrence: US)
  Receive Date: 20250831
  Receipt Date: 20251122
  Transmission Date: 20260118
  Serious: No
  Sender: MDD OPERATIONS
  Company Number: US-MDD US Operations-MDD202507-002761

PATIENT
  Age: 82 Year
  Sex: Male

DRUGS (4)
  1. ONAPGO [Suspect]
     Active Substance: APOMORPHINE HYDROCHLORIDE
     Indication: Parkinson^s disease
     Dates: start: 2025
  2. ONAPGO [Suspect]
     Active Substance: APOMORPHINE HYDROCHLORIDE
     Indication: Dyskinesia
     Dosage: 2.5 MG CONTINUOUS
     Route: 058
     Dates: start: 202506
  3. ONAPGO [Suspect]
     Active Substance: APOMORPHINE HYDROCHLORIDE
     Indication: On and off phenomenon
     Dosage: INFUSE CONTENTS OF 1 CARTRIDGE (98 MG) UNDER THE SKIN FOR 16 HOURS OR LESS EACH DAY. CONTINUOUS DOSE
     Route: 058
     Dates: start: 202506
  4. ONAPGO [Suspect]
     Active Substance: APOMORPHINE HYDROCHLORIDE
     Indication: Insomnia

REACTIONS (13)
  - Brain fog [Unknown]
  - Diarrhoea [Unknown]
  - Anaemia [Unknown]
  - Gastrointestinal tract irritation [Unknown]
  - Weight decreased [Unknown]
  - Dyskinesia [Unknown]
  - Injection site reaction [Unknown]
  - Injection site erythema [Unknown]
  - Injection site swelling [Unknown]
  - Infusion site pruritus [Recovered/Resolved]
  - Infusion site pain [Recovered/Resolved]
  - Device defective [Unknown]
  - Product use in unapproved indication [Unknown]

NARRATIVE: CASE EVENT DATE: 20250101
